FAERS Safety Report 16843807 (Version 1)
Quarter: 2019Q3

REPORT INFORMATION
  Report Type: Spontaneous
  Country: US (occurrence: US)
  Receive Date: 20190924
  Receipt Date: 20190924
  Transmission Date: 20191005
  Serious: No
  Sender: FDA-Public Use
  Company Number: US-AUROBINDO-AUR-APL-2019-037999

PATIENT
  Age: 86 Year
  Sex: Female
  Weight: 65.77 kg

DRUGS (3)
  1. ALENDRONATE SODIUM TABLETS USP 70MG [Suspect]
     Active Substance: ALENDRONATE SODIUM
     Indication: BONE LOSS
     Dosage: 1 DOSAGE FORM, EVERY WEEK
     Route: 065
     Dates: start: 20190522, end: 20190617
  2. TRAMADOL. [Concomitant]
     Active Substance: TRAMADOL
     Indication: PAIN
     Dosage: UNK, PRN
     Route: 065
  3. IBUPROFEN. [Concomitant]
     Active Substance: IBUPROFEN
     Indication: PAIN
     Dosage: UNK, PRN
     Route: 065

REACTIONS (7)
  - Arthralgia [Recovered/Resolved]
  - Dysphonia [Not Recovered/Not Resolved]
  - Extra dose administered [Unknown]
  - Fall [Recovering/Resolving]
  - Pain in extremity [Recovered/Resolved]
  - Discomfort [Recovering/Resolving]
  - Product prescribing error [Unknown]

NARRATIVE: CASE EVENT DATE: 20190607
